FAERS Safety Report 11249071 (Version 1)
Quarter: 2015Q3

REPORT INFORMATION
  Report Type: Spontaneous
  Country: US (occurrence: US)
  Receive Date: 20150708
  Receipt Date: 20150708
  Transmission Date: 20151125
  Serious: Yes (Hospitalization)
  Sender: FDA-Public Use
  Company Number: US-ELI_LILLY_AND_COMPANY-US200810001217

PATIENT
  Age: 70 Year
  Sex: Female

DRUGS (10)
  1. MUCINEX [Concomitant]
     Active Substance: GUAIFENESIN
     Dosage: UNK, AS NEEDED
  2. COMPAZINE [Concomitant]
     Active Substance: PROCHLORPERAZINE MALEATE
     Dosage: 10 MG, AS NEEDED
  3. ALBUTEROL. [Concomitant]
     Active Substance: ALBUTEROL
     Dosage: UNK, AS NEEDED
     Dates: start: 20080804
  4. FOLIC ACID. [Concomitant]
     Active Substance: FOLIC ACID
     Dosage: 1 MG, DAILY (1/D)
     Route: 048
     Dates: start: 20080804
  5. PRIMIDONE. [Concomitant]
     Active Substance: PRIMIDONE
     Dosage: 250 MG, DAILY (1/D)
  6. ALIMTA [Suspect]
     Active Substance: PEMETREXED DISODIUM
     Indication: NON-SMALL CELL LUNG CANCER
     Dosage: 785 MG, UNK
     Dates: start: 20080804, end: 20080828
  7. VITAMIN B12 [Concomitant]
     Active Substance: CYANOCOBALAMIN
     Dosage: 2 MG, UNK
  8. DECADRON [Concomitant]
     Active Substance: DEXAMETHASONE
     Dosage: 4 MG, 2/D
     Route: 048
     Dates: start: 20080804
  9. LISINOPRIL. [Concomitant]
     Active Substance: LISINOPRIL
     Dosage: 20 MG, DAILY (1/D)
  10. CLAVINEX [Concomitant]
     Dosage: 5 MG, DAILY (1/D)
     Dates: start: 20080501

REACTIONS (2)
  - Pneumonia [Unknown]
  - Interstitial lung disease [Not Recovered/Not Resolved]

NARRATIVE: CASE EVENT DATE: 20080902
